FAERS Safety Report 20779211 (Version 1)
Quarter: 2022Q2

REPORT INFORMATION
  Report Type: Spontaneous
  Country: US (occurrence: None)
  Receive Date: 20220503
  Receipt Date: 20220503
  Transmission Date: 20220721
  Serious: No
  Sender: FDA-Public Use
  Company Number: None

PATIENT

DRUGS (2)
  1. DOMEBORO [Suspect]
     Active Substance: ALUMINUM ACETATE
  2. POTASSIUM CHLORIDE [Suspect]
     Active Substance: POTASSIUM CHLORIDE

REACTIONS (4)
  - Incorrect route of product administration [None]
  - Product packaging confusion [None]
  - Product confusion [None]
  - Product label issue [None]
